FAERS Safety Report 7624005-2 (Version None)
Quarter: 2011Q3

REPORT INFORMATION
  Report Type: 
  Country: None (occurrence: None)
  Receive Date: 20110701
  Receipt Date: 20110202
  Transmission Date: 20111222
  Serious: Yes (Life-Threatening, Hospitalization)
  Sender: FDA-Public Use
  Company Number: 7039771

PATIENT
  Age: 58 Year
  Sex: Female
  Weight: 77 kg

DRUGS (6)
  1. REBIF [Suspect]
     Indication: MULTIPLE SCLEROSIS
     Dosage: 44 MCG, 3 IN 1 WK, SUBCUTANEOUS
     Route: 058
     Dates: start: 20040430, end: 20090601
  2. LIPITOR [Concomitant]
  3. WATER PILL (ALL OTHER THERAPEUTIC PRODUCTS) [Concomitant]
  4. ESTRIOL (ESTRIOL) [Concomitant]
  5. ATENOLOL [Concomitant]
  6. VERAPAMIL [Concomitant]

REACTIONS (2)
  - PNEUMONIA LEGIONELLA [None]
  - IMMUNODEFICIENCY [None]
